FAERS Safety Report 5563017-X (Version None)
Quarter: 2007Q4

REPORT INFORMATION
  Report Type: 
  Country: None (occurrence: None)
  Receive Date: 20071217
  Receipt Date: 20060515
  Transmission Date: 20080405
  Serious: Yes (Hospitalization)
  Sender: FDA-Public Use
  Company Number: CZ-ROCHE-536448

PATIENT
  Age: 66 Year
  Sex: Female
  Weight: 95 kg

DRUGS (1)
  1. ORLISTAT [Suspect]
     Indication: OBESITY
     Route: 048
     Dates: start: 20060501, end: 20060516

REACTIONS (1)
  - FEMALE GENITAL OPERATION [None]
